FAERS Safety Report 17955989 (Version 3)
Quarter: 2020Q3

REPORT INFORMATION
  Report Type: Spontaneous
  Country: US (occurrence: US)
  Receive Date: 20200629
  Receipt Date: 20200817
  Transmission Date: 20201103
  Serious: No
  Sender: FDA-Public Use
  Company Number: US-PFIZER INC-2020247151

PATIENT
  Age: 36 Year
  Sex: Male
  Weight: 127.01 kg

DRUGS (1)
  1. CHANTIX [Suspect]
     Active Substance: VARENICLINE TARTRATE
     Indication: SMOKING CESSATION THERAPY
     Dosage: UNK [WAS TAKING A PILL]

REACTIONS (2)
  - Body height decreased [Unknown]
  - Taste disorder [Unknown]
